FAERS Safety Report 7985389-9 (Version None)
Quarter: 2011Q4

REPORT INFORMATION
  Report Type: 
  Country: None (occurrence: None)
  Receive Date: 20111216
  Receipt Date: 20111207
  Transmission Date: 20120403
  Serious: Yes (Hospitalization)
  Sender: FDA-Public Use
  Company Number: US-JNJFOC-20111204076

PATIENT
  Age: 64 Year
  Sex: Female

DRUGS (6)
  1. PACLITAXEL [Suspect]
     Indication: BREAST CANCER
     Dosage: OVER 1 HOUR ON DAYS 1, 8 AND 15.
     Route: 042
     Dates: start: 20110628
  2. DOXORUBICIN HCL [Suspect]
     Indication: BREAST CANCER
     Route: 042
     Dates: start: 20110309
  3. CYCLOPHOSPHAMIDE [Suspect]
     Indication: BREAST CANCER
     Route: 065
     Dates: start: 20110309
  4. NEULASTA [Suspect]
     Indication: BREAST CANCER
     Route: 058
     Dates: start: 20110309, end: 20110420
  5. BEVACIZUMAB [Suspect]
     Indication: BREAST CANCER
     Dosage: LAST DOSE ADMINISTERED AS C6D1 PRIOR TO EVENT WAS ADMINISTERED.
     Route: 042
     Dates: start: 20110309, end: 20110614
  6. PACLITAXEL [Suspect]
     Route: 042
     Dates: start: 20110303

REACTIONS (6)
  - WEIGHT DECREASED [None]
  - NAUSEA [None]
  - NEUTROPENIA [None]
  - DIARRHOEA [None]
  - RENAL FAILURE ACUTE [None]
  - HYPOTENSION [None]
